FAERS Safety Report 4945012-4 (Version None)
Quarter: 2006Q1

REPORT INFORMATION
  Report Type: 
  Country: None (occurrence: None)
  Receive Date: 20060117
  Receipt Date: 20050623
  Transmission Date: 20060701
  Serious: Yes (Hospitalization)
  Sender: FDA-Public Use
  Company Number: A03200501911

PATIENT
  Age: 53 Year
  Sex: Female
  Weight: 86.17 kg

DRUGS (18)
  1. PLAVIX [Suspect]
     Indication: MYOCARDIAL INFARCTION
     Dosage: 75 MG QD - ORAL
     Route: 048
     Dates: start: 20030326
  2. PLAVIX [Suspect]
     Indication: STENT PLACEMENT
     Dosage: 75 MG QD - ORAL
     Route: 048
     Dates: start: 20030326
  3. METOPROLOL SUCCINATE [Concomitant]
  4. ATORVASTATIN CALCIUM [Concomitant]
  5. LISINOPRIL [Concomitant]
  6. ISOSORBIDE MONONITRATE [Concomitant]
  7. FUROSEMIDE [Concomitant]
  8. LANSOPRAZOLE [Concomitant]
  9. AMLODIPINE BESYLATE [Concomitant]
  10. BUPROPION HYDROCHLORIDE [Concomitant]
  11. PAROXETINE HYDROCHLORIDE [Concomitant]
  12. LORAZEPAM [Concomitant]
  13. GLYCERYL TRINITRATE [Concomitant]
  14. CYCLOBENZAPRINE HCL [Concomitant]
  15. ACETYLSALICYLIC ACID SRT [Concomitant]
  16. VITAMIN B COMPLEX CAP [Concomitant]
  17. ASCORBIC ACID [Concomitant]
  18. FOLIC ACID [Concomitant]

REACTIONS (2)
  - CHEST PAIN [None]
  - CONTUSION [None]
